FAERS Safety Report 4608974-0 (Version None)
Quarter: 2005Q1

REPORT INFORMATION
  Report Type: 
  Country: None (occurrence: None)
  Receive Date: 20050311
  Receipt Date: 20050228
  Transmission Date: 20050727
  Serious: Yes (Other)
  Sender: FDA-Public Use
  Company Number: 2005039945

PATIENT
  Age: 50 Year
  Sex: Female
  Weight: 67 kg

DRUGS (4)
  1. BEXTRA [Suspect]
     Indication: ARTHRITIS
     Dosage: (20 MG,) ORAL
     Route: 048
     Dates: start: 20040916, end: 20050201
  2. TAMOXIFEN (TAMOXIFEN) [Concomitant]
  3. FLUOXETINE [Concomitant]
  4. FLUPENTIXOL (FLUPENTIXOL) [Concomitant]

REACTIONS (2)
  - ABDOMINAL PAIN [None]
  - RECTAL HAEMORRHAGE [None]
